FAERS Safety Report 8228646 (Version 5)
Quarter: 2012Q4

REPORT INFORMATION
  Report Type: Spontaneous
  Country: CA (occurrence: None)
  Receive Date: 20111027
  Receipt Date: 20120820
  Transmission Date: 20130627
  Serious: Yes (Other)
  Sender: FDA-Public Use
  Company Number: 2011-4197

PATIENT
  Age: 78 Year
  Sex: Male

DRUGS (1)
  1. LANREOTIDE [Suspect]
     Indication: NEUROENDOCRINE TUMOUR
     Dosage: 120 MG (120 MG, 1 IN 28 D) SUBCUTANEOUS
     Route: 058

REACTIONS (5)
  - Pneumonia [None]
  - Vomiting [None]
  - Diarrhoea [None]
  - Dehydration [None]
  - Constipation [None]
